FAERS Safety Report 22145142 (Version 1)
Quarter: 2023Q1

REPORT INFORMATION
  Report Type: Spontaneous
  Country: CA (occurrence: CA)
  Receive Date: 20230328
  Receipt Date: 20230328
  Transmission Date: 20230417
  Serious: Yes (Other)
  Sender: FDA-Public Use
  Company Number: CA-CELLTRION INC.-2023CA006373

PATIENT

DRUGS (7)
  1. INFLECTRA [Suspect]
     Active Substance: INFLIXIMAB-DYYB
     Indication: Ankylosing spondylitis
     Dosage: 500 MG (500 MGEVERY 4 WEEK)
     Route: 042
     Dates: start: 20230320
  2. METHOTREXATE [Concomitant]
     Active Substance: METHOTREXATE
     Dosage: 25 MG, WEEKLY
     Route: 048
  3. MELOXICAM [Concomitant]
     Active Substance: MELOXICAM
     Dosage: 15 MG, 1X/DAY
     Route: 065
  4. NAPROXEN [Concomitant]
     Active Substance: NAPROXEN
     Dosage: 500 MG, 1X/DAY DRUG STATUS UNKNOWN
     Route: 048
  5. PREDNISONE [Concomitant]
     Active Substance: PREDNISONE
     Indication: Sarcoidosis
     Dosage: 5 MG, 1X/DAY
     Route: 065
  6. SECUKINUMAB [Concomitant]
     Active Substance: SECUKINUMAB
     Dosage: 300 MG EVERY 3 MONTH (300 MG MONTHLY, EVERY 3 MONTHS)
     Route: 058
  7. ACETAMINOPHEN\TRAMADOL [Concomitant]
     Active Substance: ACETAMINOPHEN\TRAMADOL
     Dosage: 1 DF, 3X/DAY (37.5/325 MG TIDDRUG STATUS UNKNOWN)
     Route: 048

REACTIONS (3)
  - Nephrolithiasis [Unknown]
  - Off label use [Unknown]
  - Off label use [Unknown]

NARRATIVE: CASE EVENT DATE: 20230320
